FAERS Safety Report 6381551-X (Version None)
Quarter: 2009Q3

REPORT INFORMATION
  Report Type: 
  Country: None (occurrence: None)
  Receive Date: 20090925
  Receipt Date: 20090911
  Transmission Date: 20100115
  Serious: Yes (Other)
  Sender: FDA-Public Use
  Company Number: 8052273

PATIENT
  Sex: Female

DRUGS (4)
  1. LEVETIRACETAM [Suspect]
     Indication: EPILEPSY
     Dosage: 1750 MG
  2. LEVETIRACETAM [Suspect]
     Indication: EPILEPSY
     Dosage: 2500 MG
  3. TOPIRAMATE [Suspect]
     Indication: EPILEPSY
     Dosage: 400 MG PO
     Route: 048
  4. TOPIRAMATE [Suspect]
     Indication: EPILEPSY
     Dosage: 450 MG PO
     Route: 048

REACTIONS (2)
  - DRUG EXPOSURE DURING PREGNANCY [None]
  - GRAND MAL CONVULSION [None]
